FAERS Safety Report 19427419 (Version 1)
Quarter: 2021Q2

REPORT INFORMATION
  Report Type: Report from Study
  Country: US (occurrence: US)
  Receive Date: 20210617
  Receipt Date: 20210617
  Transmission Date: 20210717
  Serious: Yes (Other)
  Sender: FDA-Public Use
  Company Number: US-BRISTOL-MYERS SQUIBB COMPANY-BMS-2021-057147

PATIENT
  Sex: Male

DRUGS (1)
  1. APIXABAN [Suspect]
     Active Substance: APIXABAN
     Indication: VASCULAR GRAFT
     Route: 065

REACTIONS (8)
  - Haemorrhage [Unknown]
  - Dizziness [Unknown]
  - Epistaxis [Unknown]
  - Dementia Alzheimer^s type [Unknown]
  - Haemoptysis [Unknown]
  - Bronchitis [Unknown]
  - Intentional product use issue [Unknown]
  - Pneumonia [Unknown]
